FAERS Safety Report 9679266 (Version 1)
Quarter: 2013Q4

REPORT INFORMATION
  Report Type: Spontaneous
  Country: PH (occurrence: PH)
  Receive Date: 20131109
  Receipt Date: 20131109
  Transmission Date: 20140711
  Serious: Yes (Death)
  Sender: FDA-Public Use
  Company Number: PH-MERCK-1311PHL002477

PATIENT
  Age: 83 Year
  Sex: Female

DRUGS (1)
  1. JANUVIA [Suspect]
     Dosage: UNKNOWN
     Route: 048

REACTIONS (1)
  - Myocardial infarction [Fatal]
